FAERS Safety Report 7425875-3 (Version None)
Quarter: 2011Q2

REPORT INFORMATION
  Report Type: 
  Country: None (occurrence: None)
  Receive Date: 20110420
  Receipt Date: 20110413
  Transmission Date: 20111010
  Serious: Yes (Other)
  Sender: FDA-Public Use
  Company Number: US-ROCHE-751353

PATIENT
  Sex: Male
  Weight: 86.2 kg

DRUGS (2)
  1. ACCUTANE [Suspect]
     Dosage: 40 MG IN MORNING, 20 MG IN EVENING
     Route: 065
     Dates: start: 19911023, end: 19920201
  2. ACCUTANE [Suspect]
     Dosage: 40 MG IN MORNING, 20 MG IN EVENING
     Route: 065
     Dates: start: 19920219, end: 19930101

REACTIONS (7)
  - EMOTIONAL DISTRESS [None]
  - BLOOD CHOLESTEROL INCREASED [None]
  - COLITIS [None]
  - COLITIS ULCERATIVE [None]
  - DRY SKIN [None]
  - IRRITABLE BOWEL SYNDROME [None]
  - INFLAMMATORY BOWEL DISEASE [None]
